FAERS Safety Report 12397089 (Version 2)
Quarter: 2016Q3

REPORT INFORMATION
  Report Type: Spontaneous
  Country: FR (occurrence: FR)
  Receive Date: 20160524
  Receipt Date: 20160713
  Transmission Date: 20161109
  Serious: Yes (Hospitalization, Other)
  Sender: FDA-Public Use
  Company Number: FR-BAXTER-2016BAX026116

PATIENT
  Age: 2 Year
  Sex: Male

DRUGS (28)
  1. ENDOXAN 1000 MG, POUDRE POUR SOLUTION INJECTABLE [Suspect]
     Active Substance: CYCLOPHOSPHAMIDE
     Dosage: CCG PROTOCOL
     Route: 042
     Dates: start: 20090227, end: 20090227
  2. VEPESIDE [Suspect]
     Active Substance: ETOPOSIDE
     Dosage: CCG PROTOCOL
     Route: 065
     Dates: start: 20090205, end: 20090205
  3. CISPLATIN. [Suspect]
     Active Substance: CISPLATIN
     Indication: PRODUCT USED FOR UNKNOWN INDICATION
     Dosage: CCG PROTOCOL
     Route: 042
     Dates: start: 20090115, end: 20090115
  4. CISPLATIN. [Suspect]
     Active Substance: CISPLATIN
     Dosage: CCG PROTOCOL
     Route: 042
     Dates: start: 20090205, end: 20090205
  5. CISPLATIN. [Suspect]
     Active Substance: CISPLATIN
     Dosage: CCG PROTOCOL
     Route: 042
     Dates: start: 20090423, end: 20090423
  6. BUSILVEX [Suspect]
     Active Substance: BUSULFAN
     Indication: PRODUCT USED FOR UNKNOWN INDICATION
     Dosage: HIGH DOSE
     Route: 042
     Dates: start: 20120408, end: 20120415
  7. VEPESIDE [Suspect]
     Active Substance: ETOPOSIDE
     Indication: PRODUCT USED FOR UNKNOWN INDICATION
     Dosage: UNIT DOSE: 120
     Route: 042
     Dates: start: 20081024, end: 20081028
  8. VINCRISTINE [Suspect]
     Active Substance: VINCRISTINE
     Dosage: CCG PROTOCOL
     Route: 042
     Dates: start: 20090205, end: 20090205
  9. CARBOPLATINE [Suspect]
     Active Substance: CARBOPLATIN
     Dosage: 1 COURSE
     Route: 042
     Dates: start: 20100301, end: 20100306
  10. VINCRISTINE [Suspect]
     Active Substance: VINCRISTINE
     Dosage: CCG PROTOCOL
     Route: 042
     Dates: start: 20090227, end: 20090227
  11. THIOTEPA. [Suspect]
     Active Substance: THIOTEPA
     Indication: PRODUCT USED FOR UNKNOWN INDICATION
     Dosage: HIGH DOSE
     Route: 042
     Dates: start: 20120408, end: 20120415
  12. ENDOXAN 1000 MG, POUDRE POUR SOLUTION INJECTABLE [Suspect]
     Active Substance: CYCLOPHOSPHAMIDE
     Dosage: 6 COURSES
     Route: 042
  13. CARBOPLATINE [Suspect]
     Active Substance: CARBOPLATIN
     Indication: PRODUCT USED FOR UNKNOWN INDICATION
     Route: 042
     Dates: start: 20081024, end: 20081028
  14. CARBOPLATINE [Suspect]
     Active Substance: CARBOPLATIN
     Route: 042
     Dates: start: 20081114, end: 20081118
  15. VINCRISTINE [Suspect]
     Active Substance: VINCRISTINE
     Dosage: 6 COURSES
     Route: 042
  16. ENDOXAN 1000 MG, POUDRE POUR SOLUTION INJECTABLE [Suspect]
     Active Substance: CYCLOPHOSPHAMIDE
     Dosage: CCG PROTOCOL
     Route: 042
     Dates: start: 20090205, end: 20090205
  17. ENDOXAN 1000 MG, POUDRE POUR SOLUTION INJECTABLE [Suspect]
     Active Substance: CYCLOPHOSPHAMIDE
     Dosage: CCG PROTOCOL
     Route: 042
     Dates: start: 20090423, end: 20090423
  18. VINCRISTINE [Suspect]
     Active Substance: VINCRISTINE
     Indication: PRODUCT USED FOR UNKNOWN INDICATION
     Dosage: CCG PROTOCOL
     Route: 042
     Dates: start: 20090115, end: 20090115
  19. ENDOXAN 1000 MG, POUDRE POUR SOLUTION INJECTABLE [Suspect]
     Active Substance: CYCLOPHOSPHAMIDE
     Indication: PRODUCT USED FOR UNKNOWN INDICATION
     Dosage: CCG PROTOCOL
     Route: 042
     Dates: start: 20090115, end: 20090115
  20. VEPESIDE [Suspect]
     Active Substance: ETOPOSIDE
     Dosage: CCG PROTOCOL
     Route: 065
     Dates: start: 20090227, end: 20090227
  21. CISPLATIN. [Suspect]
     Active Substance: CISPLATIN
     Dosage: CCG PROTOCOL
     Route: 042
     Dates: start: 20090227, end: 20090227
  22. VEPESIDE [Suspect]
     Active Substance: ETOPOSIDE
     Dosage: CCG PROTOCOL
     Route: 065
     Dates: start: 20090423, end: 20090423
  23. VEPESIDE [Suspect]
     Active Substance: ETOPOSIDE
     Dosage: 1 COURSE
     Route: 065
     Dates: start: 20100301, end: 20100306
  24. VINCRISTINE [Suspect]
     Active Substance: VINCRISTINE
     Dosage: CCG PROTOCOL
     Route: 042
     Dates: start: 20090423, end: 20090423
  25. NATULAN [Suspect]
     Active Substance: PROCARBAZINE HYDROCHLORIDE
     Indication: PRODUCT USED FOR UNKNOWN INDICATION
     Dosage: 6 COURSES
     Route: 065
  26. CARBOPLATINE [Suspect]
     Active Substance: CARBOPLATIN
     Dosage: 6 COURSES
     Route: 042
  27. VEPESIDE [Suspect]
     Active Substance: ETOPOSIDE
     Route: 065
     Dates: start: 20081114, end: 20081118
  28. VEPESIDE [Suspect]
     Active Substance: ETOPOSIDE
     Dosage: CCG PROTOCOL
     Route: 065
     Dates: start: 20090115, end: 20090115

REACTIONS (3)
  - Medulloblastoma recurrent [Unknown]
  - Acute myeloid leukaemia [Unknown]
  - Medulloblastoma recurrent [Unknown]

NARRATIVE: CASE EVENT DATE: 201001
